FAERS Safety Report 25841831 (Version 3)
Quarter: 2025Q4

REPORT INFORMATION
  Report Type: Spontaneous
  Country: US (occurrence: US)
  Receive Date: 20250924
  Receipt Date: 20251118
  Transmission Date: 20260118
  Serious: Yes (Hospitalization)
  Sender: MERCK SHARP & DOHME LLC
  Company Number: US-009507513-2329995

PATIENT
  Age: 82 Year
  Sex: Female
  Weight: 84.3 kg

DRUGS (7)
  1. PEMBROLIZUMAB [Suspect]
     Active Substance: PEMBROLIZUMAB
     Indication: Endometrial cancer
     Dosage: 200 MG
     Route: 065
     Dates: start: 20250805, end: 20250805
  2. TAXOL [Suspect]
     Active Substance: PACLITAXEL
     Dosage: 148.8 MG
     Route: 065
     Dates: start: 20250805, end: 20250812
  3. CARBOPLATIN [Suspect]
     Active Substance: CARBOPLATIN
     Dosage: 346 MG
     Route: 065
     Dates: start: 20250805, end: 20250805
  4. ALLOPURINOL [Concomitant]
     Active Substance: ALLOPURINOL
     Dosage: 300 MG TOTAL DAILY DOSE
     Route: 048
  5. APIXABAN [Concomitant]
     Active Substance: APIXABAN
     Dosage: 5 MG IN THE MORNING?5 MG IN THE EVENING
     Route: 048
  6. BUMETANIDE [Concomitant]
     Active Substance: BUMETANIDE
     Route: 048
  7. OXYCODONE [Concomitant]
     Active Substance: OXYCODONE
     Dosage: Q6H X 7D
     Route: 048

REACTIONS (1)
  - Oesophageal stenosis [Recovered/Resolved]

NARRATIVE: CASE EVENT DATE: 20250912
